FAERS Safety Report 6554444-2 (Version None)
Quarter: 2010Q1

REPORT INFORMATION
  Report Type: 
  Country: None (occurrence: None)
  Receive Date: 20100127
  Receipt Date: 20100127
  Transmission Date: 20100710
  Serious: Yes (Hospitalization, Other)
  Sender: FDA-Public Use
  Company Number: CA-ABBOTT-10P-028-0618500-00

PATIENT
  Sex: Male
  Weight: 49.032 kg

DRUGS (1)
  1. HUMIRA [Suspect]
     Indication: ANKYLOSING SPONDYLITIS
     Route: 058
     Dates: start: 20080205

REACTIONS (4)
  - DEVICE BREAKAGE [None]
  - FALL [None]
  - HIP DEFORMITY [None]
  - JOINT DISLOCATION [None]
